FAERS Safety Report 23379528 (Version 30)
Quarter: 2025Q1

REPORT INFORMATION
  Report Type: Spontaneous
  Country: US (occurrence: US)
  Receive Date: 20240108
  Receipt Date: 20250320
  Transmission Date: 20250408
  Serious: Yes (Disabling, Other)
  Sender: PFIZER
  Company Number: US-PFIZER INC-202400001717

PATIENT
  Age: 74 Year
  Sex: Female

DRUGS (1)
  1. ESTRING [Suspect]
     Active Substance: ESTRADIOL
     Indication: Oestrogen deficiency
     Route: 067

REACTIONS (17)
  - Arterial rupture [Unknown]
  - Brain oedema [Unknown]
  - Diabetes mellitus [Unknown]
  - Skeletal injury [Recovered/Resolved]
  - Limb injury [Recovered/Resolved]
  - Blindness unilateral [Not Recovered/Not Resolved]
  - Ear disorder [Unknown]
  - Meningioma [Unknown]
  - Fall [Unknown]
  - Therapeutic response unexpected [Unknown]
  - Panic attack [Unknown]
  - Mobility decreased [Unknown]
  - Ocular neoplasm [Unknown]
  - Vomiting [Unknown]
  - Wound [Unknown]
  - Malaise [Unknown]
  - Stress [Unknown]

NARRATIVE: CASE EVENT DATE: 20230101
